FAERS Safety Report 17240826 (Version 1)
Quarter: 2020Q1

REPORT INFORMATION
  Report Type: Report from Study
  Country: CA (occurrence: CA)
  Receive Date: 20200107
  Receipt Date: 20200107
  Transmission Date: 20200409
  Serious: Yes (Other)
  Sender: FDA-Public Use
  Company Number: CA-ORION CORPORATION ORION PHARMA-TREX2020-0052

PATIENT
  Age: 42 Year
  Sex: Female

DRUGS (10)
  1. DESOXIMETASONE. [Concomitant]
     Active Substance: DESOXIMETASONE
     Route: 065
  2. HYDROXYCHLOROQUINE [Concomitant]
     Active Substance: HYDROXYCHLOROQUINE
     Route: 065
  3. IBUPROFEN. [Concomitant]
     Active Substance: IBUPROFEN
     Route: 065
  4. TYLENOL [Concomitant]
     Active Substance: ACETAMINOPHEN
     Route: 065
  5. SULFASALAZINE. [Concomitant]
     Active Substance: SULFASALAZINE
     Route: 065
  6. COSENTYX [Suspect]
     Active Substance: SECUKINUMAB
     Indication: ANKYLOSING SPONDYLITIS
     Route: 058
  7. COSENTYX [Suspect]
     Active Substance: SECUKINUMAB
     Route: 058
  8. COSENTYX [Suspect]
     Active Substance: SECUKINUMAB
     Route: 058
  9. NAPROXEN. [Concomitant]
     Active Substance: NAPROXEN
     Indication: ABDOMINAL DISCOMFORT
     Route: 065
  10. METHOTREXATE (TRADE NAME UNKNOWN) [Suspect]
     Active Substance: METHOTREXATE
     Indication: PRODUCT USED FOR UNKNOWN INDICATION
     Route: 065

REACTIONS (13)
  - Pneumonia [Unknown]
  - Back pain [Unknown]
  - Pain in extremity [Unknown]
  - Tenderness [Unknown]
  - Drug ineffective [Unknown]
  - Peripheral swelling [Unknown]
  - Fatigue [Unknown]
  - Joint swelling [Unknown]
  - Musculoskeletal stiffness [Unknown]
  - Neck pain [Unknown]
  - Arthralgia [Unknown]
  - Discomfort [Unknown]
  - Product use issue [Unknown]
